FAERS Safety Report 5807253-3 (Version None)
Quarter: 2008Q3

REPORT INFORMATION
  Report Type: 
  Country: None (occurrence: None)
  Receive Date: 20080711
  Receipt Date: 20080709
  Transmission Date: 20090109
  Serious: Yes (Death)
  Sender: FDA-Public Use
  Company Number: US-ASTRAZENECA-2008UW08387

PATIENT
  Age: 26 Year
  Sex: Male

DRUGS (4)
  1. SEROQUEL [Suspect]
     Indication: BIPOLAR DISORDER
     Dosage: 300 MG IN MORNING, 600 MG AT BEDTIME
     Route: 048
     Dates: start: 20040101
  2. KLONOPIN [Concomitant]
  3. XANAX [Concomitant]
     Dosage: 0.5 MG 1-2 BID PRN
  4. LEXAPRO [Concomitant]

REACTIONS (2)
  - COMPLETED SUICIDE [None]
  - WEIGHT INCREASED [None]
